FAERS Safety Report 17252288 (Version 1)
Quarter: 2020Q1

REPORT INFORMATION
  Report Type: Spontaneous
  Country: US (occurrence: US)
  Receive Date: 20200108
  Receipt Date: 20200108
  Transmission Date: 20200409
  Serious: Yes (Disabling)
  Sender: FDA-Public Use
  Company Number: None

PATIENT
  Age: 63 Year
  Sex: Female
  Weight: 56.25 kg

DRUGS (18)
  1. SUMATRIPTAN 100 MG [Concomitant]
     Active Substance: SUMATRIPTAN
  2. SUMATRIPTAN 60MG SQ [Concomitant]
  3. ATIVAN 1 MG [Concomitant]
  4. RIBOFLAVIN 400 MG [Concomitant]
  5. CALCIUM [Suspect]
     Active Substance: CALCIUM
  6. MELATONIN 10 MG [Concomitant]
     Active Substance: MELATONIN
  7. ADDERALL [Concomitant]
     Active Substance: AMPHETAMINE ASPARTATE\AMPHETAMINE SULFATE\DEXTROAMPHETAMINE SACCHARATE\DEXTROAMPHETAMINE SULFATE
  8. L5 MTHFR LOZENGES [Concomitant]
  9. AIMOVIG [Suspect]
     Active Substance: ERENUMAB-AOOE
     Indication: MIGRAINE
     Dosage: ?          OTHER FREQUENCY:ONCE A MONTH;?
     Route: 058
     Dates: start: 20190501, end: 20191220
  10. HELIOCARE ADVANCED [Concomitant]
  11. LOSARTAN 25 MG [Concomitant]
     Active Substance: LOSARTAN
  12. HCTZ 25 MG [Concomitant]
  13. AIMOVIG 140 MG SC [Concomitant]
  14. CO CQ10 100MG [Concomitant]
  15. CYMBALTA [Concomitant]
     Active Substance: DULOXETINE HYDROCHLORIDE
  16. VITAMIN B12 [Suspect]
     Active Substance: CYANOCOBALAMIN
  17. ASPIRIN 8 MG [Concomitant]
  18. COREG [Concomitant]
     Active Substance: CARVEDILOL

REACTIONS (7)
  - Rosacea [None]
  - Condition aggravated [None]
  - Ocular rosacea [None]
  - Burning sensation [None]
  - Swelling face [None]
  - Raynaud^s phenomenon [None]
  - Facial pain [None]

NARRATIVE: CASE EVENT DATE: 20190901
